FAERS Safety Report 9568919 (Version 1)
Quarter: 2013Q3

REPORT INFORMATION
  Report Type: Spontaneous
  Country: US (occurrence: US)
  Receive Date: 20130930
  Receipt Date: 20130930
  Transmission Date: 20140515
  Serious: No
  Sender: FDA-Public Use
  Company Number: US-AMGEN-USASP2013060507

PATIENT
  Age: 49 Year
  Sex: Female
  Weight: 114.29 kg

DRUGS (11)
  1. ENBREL [Suspect]
     Indication: PRODUCT USED FOR UNKNOWN INDICATION
     Dosage: 50 MG, QWK
     Route: 058
  2. PRISTIQ [Concomitant]
     Dosage: 100 MG, UNK
  3. PREMARIN [Concomitant]
     Dosage: 0.3 MG, UNK
  4. SYNTHROID [Concomitant]
     Dosage: 25 MUG, UNK
  5. STOOL SOFTENER [Concomitant]
     Dosage: 100 MG, UNK
  6. ADDERALL [Concomitant]
     Dosage: 5 MG, UNK
  7. ACIPHEX [Concomitant]
     Dosage: 20 MG, UNK
  8. VITAMIN B [Concomitant]
     Dosage: UNK
  9. MULTIVITAMINS, PLAIN [Concomitant]
     Dosage: UNK
  10. FIBER [Concomitant]
     Dosage: UNK
  11. IRON [Concomitant]
     Dosage: UNK

REACTIONS (3)
  - Neck pain [Unknown]
  - Intervertebral disc disorder [Unknown]
  - Rheumatoid arthritis [Unknown]
